FAERS Safety Report 9303812 (Version 1)
Quarter: 2013Q2

REPORT INFORMATION
  Report Type: Spontaneous
  Country: SE (occurrence: SE)
  Receive Date: 20130522
  Receipt Date: 20130522
  Transmission Date: 20140414
  Serious: Yes (Death, Other)
  Sender: FDA-Public Use
  Company Number: SE-GLAXOSMITHKLINE-B0892280A

PATIENT
  Age: 47 Year
  Sex: Female

DRUGS (16)
  1. VALTREX [Suspect]
     Indication: HERPES ZOSTER
     Dosage: 3G PER DAY
     Route: 048
     Dates: start: 20120924, end: 20120926
  2. LEVEMIR [Concomitant]
  3. METOPROLOL [Concomitant]
  4. RENVELA [Concomitant]
  5. FOLACIN [Concomitant]
  6. CLOPIDOGREL [Concomitant]
  7. AMINO ACIDS [Concomitant]
  8. DUROFERON [Concomitant]
  9. NATRIUMBIKARBONAT [Concomitant]
  10. HERACILLIN [Concomitant]
  11. ETALPHA [Concomitant]
  12. BETOLVEX [Concomitant]
  13. FURIX [Concomitant]
  14. TROMBYL [Concomitant]
  15. ATACAND [Concomitant]
  16. NOVORAPID [Concomitant]

REACTIONS (7)
  - Depressed level of consciousness [Fatal]
  - Poisoning [Fatal]
  - Muscle spasms [Fatal]
  - Sensory disturbance [Fatal]
  - Agitation [Fatal]
  - Hallucination [Fatal]
  - Confusional state [Fatal]
